FAERS Safety Report 12527593 (Version 15)
Quarter: 2020Q1

REPORT INFORMATION
  Report Type: Spontaneous
  Country: CA (occurrence: CA)
  Receive Date: 20160705
  Receipt Date: 20200225
  Transmission Date: 20200409
  Serious: Yes (Other)
  Sender: FDA-Public Use
  Company Number: CA-ROCHE-1787846

PATIENT
  Sex: Male
  Weight: 110 kg

DRUGS (15)
  1. XOLAIR [Suspect]
     Active Substance: OMALIZUMAB
     Indication: ASTHMA
     Route: 058
     Dates: start: 20150722
  2. XOLAIR [Suspect]
     Active Substance: OMALIZUMAB
     Route: 058
     Dates: start: 20190108
  3. XOLAIR [Suspect]
     Active Substance: OMALIZUMAB
     Route: 058
     Dates: start: 20181213
  4. XOLAIR [Suspect]
     Active Substance: OMALIZUMAB
     Route: 058
     Dates: start: 20181224
  5. SYMBICORT [Concomitant]
     Active Substance: BUDESONIDE\FORMOTEROL FUMARATE DIHYDRATE
     Indication: PRODUCT USED FOR UNKNOWN INDICATION
     Dosage: 200/6 MCG
     Route: 055
     Dates: start: 201504, end: 201609
  6. XOLAIR [Suspect]
     Active Substance: OMALIZUMAB
     Route: 058
     Dates: start: 20170302
  7. BREO ELLIPTA [Concomitant]
     Active Substance: FLUTICASONE FUROATE\VILANTEROL TRIFENATATE
     Indication: PRODUCT USED FOR UNKNOWN INDICATION
     Route: 055
     Dates: start: 201609
  8. XOLAIR [Suspect]
     Active Substance: OMALIZUMAB
     Route: 058
     Dates: start: 20170817
  9. ALVESCO [Concomitant]
     Active Substance: CICLESONIDE
     Indication: ASTHMA
     Dosage: AS REQUIRED
     Route: 055
     Dates: start: 2016
  10. XOLAIR [Suspect]
     Active Substance: OMALIZUMAB
     Route: 058
     Dates: start: 20170622
  11. XOLAIR [Suspect]
     Active Substance: OMALIZUMAB
     Route: 058
     Dates: start: 20170316
  12. VENTOLIN [Concomitant]
     Active Substance: ALBUTEROL SULFATE
     Indication: PRODUCT USED FOR UNKNOWN INDICATION
     Dosage: AS REQUIRED
     Route: 055
  13. XOLAIR [Suspect]
     Active Substance: OMALIZUMAB
     Route: 058
     Dates: start: 20170608
  14. XOLAIR [Suspect]
     Active Substance: OMALIZUMAB
     Route: 058
     Dates: start: 20181105
  15. PREDNISONE. [Concomitant]
     Active Substance: PREDNISONE
     Indication: PRODUCT USED FOR UNKNOWN INDICATION
     Route: 048
     Dates: start: 2014

REACTIONS (22)
  - Bronchopulmonary aspergillosis allergic [Recovering/Resolving]
  - Respiratory tract congestion [Recovering/Resolving]
  - Vomiting [Recovering/Resolving]
  - Sinusitis [Recovering/Resolving]
  - Dizziness [Unknown]
  - Weight decreased [Unknown]
  - Wheezing [Unknown]
  - Loss of consciousness [Recovering/Resolving]
  - Productive cough [Recovering/Resolving]
  - Middle insomnia [Recovering/Resolving]
  - Asthma [Not Recovered/Not Resolved]
  - Organising pneumonia [Recovering/Resolving]
  - Pneumonitis [Recovering/Resolving]
  - Eye swelling [Recovering/Resolving]
  - Incorrect dose administered [Unknown]
  - General physical health deterioration [Recovering/Resolving]
  - Forced expiratory volume decreased [Recovered/Resolved]
  - Blood pressure systolic increased [Unknown]
  - Chest discomfort [Recovering/Resolving]
  - Rhinorrhoea [Unknown]
  - Dyspnoea [Unknown]
  - Pharyngeal swelling [Recovering/Resolving]

NARRATIVE: CASE EVENT DATE: 20170316
